FAERS Safety Report 12288494 (Version 1)
Quarter: 2016Q2

REPORT INFORMATION
  Report Type: Spontaneous
  Country: RO (occurrence: RO)
  Receive Date: 20160420
  Receipt Date: 20160420
  Transmission Date: 20160815
  Serious: Yes (Hospitalization)
  Sender: FDA-Public Use
  Company Number: PHHY2011RO128526

PATIENT
  Sex: Male

DRUGS (3)
  1. OSPAMOX [Suspect]
     Active Substance: AMOXICILLIN
     Indication: ANIMAL BITE
     Route: 048
     Dates: start: 20110422, end: 20110422
  2. ALGOCALMIN [Suspect]
     Active Substance: METAMIZOLE SODIUM
     Indication: ANIMAL BITE
     Dosage: 500 MG, UNK
     Route: 048
     Dates: start: 20110422, end: 20110422
  3. ANTINEVRALGIC [Suspect]
     Active Substance: ASPIRIN\CAFFEINE\PHENACETIN
     Indication: ANIMAL BITE
     Route: 048
     Dates: start: 20110422, end: 20110422

REACTIONS (4)
  - Flushing [Recovered/Resolved]
  - Peripheral swelling [Recovered/Resolved]
  - Conjunctival hyperaemia [Recovered/Resolved]
  - Eyelid oedema [Recovered/Resolved]
